FAERS Safety Report 18467009 (Version 1)
Quarter: 2020Q4

REPORT INFORMATION
  Report Type: Spontaneous
  Country: US (occurrence: US)
  Receive Date: 20201103
  Receipt Date: 20201103
  Transmission Date: 20210114
  Serious: No
  Sender: FDA-Public Use
  Company Number: None

PATIENT
  Age: 89 Year
  Sex: Female
  Weight: 34.47 kg

DRUGS (8)
  1. NATURE-THROID [Suspect]
     Active Substance: THYROID, PORCINE
     Indication: THYROID DISORDER
     Dosage: ?          QUANTITY:1 DF DOSAGE FORM;?
     Route: 048
     Dates: start: 20200901, end: 20201016
  2. LOW DOSE ASPRIN [Concomitant]
     Active Substance: ASPIRIN
  3. THROID DESSICATED [Concomitant]
  4. FUROSEMIDE. [Concomitant]
     Active Substance: FUROSEMIDE
  5. LOSARTIN POTASSIUM [Concomitant]
  6. IRON [Concomitant]
     Active Substance: IRON
  7. GARDEN OF LIFE B COMPLEX VITAMINS [Concomitant]
  8. TUMERIC [Concomitant]
     Active Substance: HERBALS\TURMERIC

REACTIONS (4)
  - Alopecia [None]
  - Recalled product administered [None]
  - Fatigue [None]
  - Manufacturing materials issue [None]

NARRATIVE: CASE EVENT DATE: 20200910
